FAERS Safety Report 7594287-4 (Version None)
Quarter: 2011Q3

REPORT INFORMATION
  Report Type: 
  Country: None (occurrence: None)
  Receive Date: 20110706
  Receipt Date: 20110627
  Transmission Date: 20111222
  Serious: Yes (Hospitalization)
  Sender: FDA-Public Use
  Company Number: US-ASTRAZENECA-2010SE35278

PATIENT
  Age: 64 Year
  Sex: Female
  Weight: 101.6 kg

DRUGS (4)
  1. HYPERTENSION [Concomitant]
     Indication: HYPERTENSION
  2. SEROQUEL [Suspect]
     Route: 048
  3. THYROID MEDICATION [Concomitant]
     Indication: THYROID DISORDER
  4. SEROQUEL [Suspect]
     Route: 048

REACTIONS (2)
  - ACTIVITIES OF DAILY LIVING IMPAIRED [None]
  - INTRACRANIAL ANEURYSM [None]
